FAERS Safety Report 7728312-4 (Version None)
Quarter: 2011Q3

REPORT INFORMATION
  Report Type: 
  Country: None (occurrence: None)
  Receive Date: 20110905
  Receipt Date: 20110831
  Transmission Date: 20111222
  Serious: Yes (Death, Hospitalization)
  Sender: FDA-Public Use
  Company Number: PHHY2011MX69214

PATIENT
  Sex: Female

DRUGS (1)
  1. STALEVO 100 [Suspect]
     Indication: PARKINSON'S DISEASE
     Dosage: TABLETS (200/50/12.5 MG) PER DAY
     Route: 048
     Dates: start: 20110617

REACTIONS (3)
  - CEREBRAL HAEMORRHAGE [None]
  - DEATH [None]
  - MALAISE [None]
